FAERS Safety Report 5806242-2 (Version None)
Quarter: 2008Q3

REPORT INFORMATION
  Report Type: 
  Country: None (occurrence: None)
  Receive Date: 20080709
  Receipt Date: 20080709
  Transmission Date: 20090109
  Serious: Yes (Disabling)
  Sender: FDA-Public Use
  Company Number: None

PATIENT
  Sex: Male

DRUGS (1)
  1. LIDOCAINE W/ EPINEPHRINE [Suspect]
     Indication: ARTHROPATHY
     Dosage: 270 ML 5 ML/ HR. 014

REACTIONS (1)
  - CHONDROPATHY [None]
